FAERS Safety Report 10872403 (Version 1)
Quarter: 2015Q1

REPORT INFORMATION
  Report Type: Report from Study
  Country: US (occurrence: US)
  Receive Date: 20150226
  Receipt Date: 20150226
  Transmission Date: 20150721
  Serious: Yes (Death, Hospitalization)
  Sender: FDA-Public Use
  Company Number: US-BRISTOL-MYERS SQUIBB COMPANY-16347536

PATIENT
  Age: 76 Year
  Sex: Female
  Weight: 78 kg

DRUGS (3)
  1. BEVACIZUMAB [Suspect]
     Active Substance: BEVACIZUMAB
     Indication: ENDOMETRIAL CANCER
     Dosage: 1110 MG, UNK
     Route: 042
     Dates: start: 20110803, end: 20111012
  2. IXABEPILONE [Suspect]
     Active Substance: IXABEPILONE
     Indication: ENDOMETRIAL CANCER
     Dosage: 46.5 MG, UNK
     Route: 042
     Dates: start: 20110803, end: 20111012
  3. CARBOPLATIN. [Suspect]
     Active Substance: CARBOPLATIN
     Indication: ENDOMETRIAL CANCER
     Dosage: 477 MG, UNK
     Route: 042
     Dates: start: 20110803, end: 20111012

REACTIONS (8)
  - Multi-organ failure [Fatal]
  - Nausea [Unknown]
  - Diarrhoea [Unknown]
  - Platelet count decreased [Unknown]
  - Vomiting [Unknown]
  - Neutrophil count decreased [Unknown]
  - White blood cell count decreased [Unknown]
  - Dehydration [Unknown]

NARRATIVE: CASE EVENT DATE: 20111014
